FAERS Safety Report 15326099 (Version 1)
Quarter: 2018Q3

REPORT INFORMATION
  Report Type: Spontaneous
  Country: GB (occurrence: GB)
  Receive Date: 20180828
  Receipt Date: 20180828
  Transmission Date: 20181010
  Serious: Yes (Hospitalization)
  Sender: FDA-Public Use
  Company Number: GB-ELI_LILLY_AND_COMPANY-GB201808011803

PATIENT
  Age: 82 Year
  Sex: Female

DRUGS (3)
  1. 5 FU [Suspect]
     Active Substance: FLUOROURACIL
     Indication: BLADDER CANCER STAGE III
     Dosage: UNK UNK, UNKNOWN
     Route: 065
  2. ERBITUX [Suspect]
     Active Substance: CETUXIMAB
     Indication: BLADDER CANCER STAGE III
     Dosage: UNK UNK, WEEKLY (1/W)
     Route: 042
  3. MITOMYCIN. [Suspect]
     Active Substance: MITOMYCIN
     Indication: BLADDER CANCER STAGE III
     Dosage: 12 MG/M2, UNKNOWN
     Route: 065

REACTIONS (3)
  - Interstitial lung disease [Unknown]
  - Respiratory failure [Unknown]
  - Off label use [Unknown]
